FAERS Safety Report 9234518 (Version 1)
Quarter: 2013Q2

REPORT INFORMATION
  Report Type: Spontaneous
  Country: US (occurrence: US)
  Receive Date: 20130416
  Receipt Date: 20130416
  Transmission Date: 20140414
  Serious: No
  Sender: FDA-Public Use
  Company Number: US-PFIZER INC-2013117289

PATIENT
  Sex: Female

DRUGS (2)
  1. LYRICA [Suspect]
     Indication: FIBROMYALGIA
     Dosage: UNK, 1X/DAY BEFORE BED
  2. LYRICA [Suspect]
     Dosage: 225 MG, 2X/DAY

REACTIONS (3)
  - Vision blurred [Unknown]
  - Disturbance in attention [Unknown]
  - Fatigue [Unknown]
